FAERS Safety Report 12769628 (Version 2)
Quarter: 2016Q4

REPORT INFORMATION
  Report Type: Spontaneous
  Country: DE (occurrence: DE)
  Receive Date: 20160922
  Receipt Date: 20161025
  Transmission Date: 20170207
  Serious: Yes (Hospitalization)
  Sender: FDA-Public Use
  Company Number: DE-AMGEN-DEUSP2016128207

PATIENT
  Age: 59 Year
  Sex: Male
  Weight: 107 kg

DRUGS (5)
  1. NACL [Concomitant]
     Active Substance: SODIUM CHLORIDE
     Dosage: 250 MG, UNK
  2. REVLIMID [Concomitant]
     Active Substance: LENALIDOMIDE
     Indication: PLASMA CELL MYELOMA
     Dosage: 25 MG, ON DAY ONE AND TWO
     Dates: start: 20160804
  3. KYPROLIS [Suspect]
     Active Substance: CARFILZOMIB
     Indication: PLASMA CELL MYELOMA
     Dosage: 20 MG/M2, IN TOTAL ON DAY ONE AND TWO
     Route: 042
     Dates: start: 20160804
  4. KYPROLIS [Suspect]
     Active Substance: CARFILZOMIB
     Dosage: 27 MG/M2, 55, 67 MG IN TOTAL ON DAY EIGHT
     Route: 042
     Dates: end: 20160811
  5. DEXMETHASONE [Concomitant]
     Active Substance: DEXAMETHASONE
     Indication: PLASMA CELL MYELOMA
     Dosage: 40 MG, ON DAY ONE, EIGHT, FIFTEEN, AND TWENTY TWO
     Dates: start: 20160804

REACTIONS (6)
  - Dyspnoea [Recovered/Resolved]
  - Disturbance in attention [Recovered/Resolved]
  - Headache [Recovered/Resolved]
  - Abdominal pain [Recovered/Resolved]
  - Hypotension [Recovered/Resolved]
  - Hypertension [Recovered/Resolved]

NARRATIVE: CASE EVENT DATE: 20160811
